FAERS Safety Report 7295197-2 (Version None)
Quarter: 2011Q1

REPORT INFORMATION
  Report Type: 
  Country: None (occurrence: None)
  Receive Date: 20110216
  Receipt Date: 20101202
  Transmission Date: 20110831
  Serious: No
  Sender: FDA-Public Use
  Company Number: A0897425A

PATIENT
  Sex: Male

DRUGS (2)
  1. VOTRIENT [Suspect]
     Route: 048
  2. BEANO [Suspect]
     Route: 048

REACTIONS (3)
  - BLOOD GLUCOSE DECREASED [None]
  - DIARRHOEA [None]
  - DRUG INTERACTION [None]
